FAERS Safety Report 18995027 (Version 4)
Quarter: 2021Q3

REPORT INFORMATION
  Report Type: Spontaneous
  Country: US (occurrence: US)
  Receive Date: 20210311
  Receipt Date: 20210726
  Transmission Date: 20211014
  Serious: Yes (Hospitalization, Other)
  Sender: FDA-Public Use
  Company Number: US-ROCHE-2768465

PATIENT
  Age: 54 Year
  Sex: Female

DRUGS (25)
  1. XELODA [Suspect]
     Active Substance: CAPECITABINE
     Route: 048
     Dates: start: 201608, end: 20190306
  2. HERCEPTIN [Suspect]
     Active Substance: TRASTUZUMAB
     Indication: BREAST CANCER METASTATIC
     Dosage: CYCLE 9
     Route: 041
     Dates: start: 20200514, end: 20201030
  3. HERCEPTIN [Suspect]
     Active Substance: TRASTUZUMAB
     Dosage: WITH XELODA
     Route: 041
     Dates: start: 20121129, end: 20130620
  4. MS CONTIN [Concomitant]
     Active Substance: MORPHINE SULFATE
     Route: 048
  5. LIVALO [Concomitant]
     Active Substance: PITAVASTATIN CALCIUM
     Route: 048
  6. NUVIGIL [Concomitant]
     Active Substance: ARMODAFINIL
     Route: 048
  7. PROAIR HFA [Concomitant]
     Active Substance: ALBUTEROL SULFATE
     Route: 055
  8. HERCEPTIN [Suspect]
     Active Substance: TRASTUZUMAB
     Route: 041
     Dates: start: 20210105
  9. NERATINIB [Concomitant]
     Active Substance: NERATINIB
  10. XELODA [Suspect]
     Active Substance: CAPECITABINE
     Indication: BREAST CANCER METASTATIC
     Dosage: 2 TABLETS TWICE PER DAY DAY 1?14, THEN 7 DAYS OFF
     Route: 048
     Dates: start: 20200514, end: 20201030
  11. HERCEPTIN [Suspect]
     Active Substance: TRASTUZUMAB
     Dosage: WITH XELODA
     Route: 041
     Dates: start: 20120214, end: 20121031
  12. ASPIRIN 81 [Concomitant]
     Active Substance: ASPIRIN
     Route: 048
  13. CHOLECALCIFEROL [Concomitant]
     Active Substance: CHOLECALCIFEROL
     Route: 048
  14. TYKERB [Concomitant]
     Active Substance: LAPATINIB DITOSYLATE
  15. AMLODIPINE [Concomitant]
     Active Substance: AMLODIPINE BESYLATE
     Route: 048
  16. ATIVAN [Concomitant]
     Active Substance: LORAZEPAM
     Route: 048
  17. TUKYSA [Suspect]
     Active Substance: TUCATINIB
     Indication: BREAST CANCER METASTATIC
     Route: 048
     Dates: start: 20200514, end: 20201030
  18. AMBIEN [Concomitant]
     Active Substance: ZOLPIDEM TARTRATE
     Route: 048
  19. FLUOXETINE [Concomitant]
     Active Substance: FLUOXETINE HYDROCHLORIDE
     Route: 048
  20. DICLOFENAC [Concomitant]
     Active Substance: DICLOFENAC
     Route: 061
  21. TUKYSA [Suspect]
     Active Substance: TUCATINIB
     Route: 048
     Dates: start: 20210105
  22. HERCEPTIN [Suspect]
     Active Substance: TRASTUZUMAB
     Route: 041
     Dates: start: 200607, end: 200704
  23. COENZYME Q10 [Concomitant]
     Active Substance: DIETARY SUPPLEMENT\UBIDECARENONE
     Route: 048
  24. CURCUMIN [Concomitant]
     Active Substance: CURCUMIN
  25. OXYCODONE [Concomitant]
     Active Substance: OXYCODONE
     Indication: PAIN
     Route: 048

REACTIONS (15)
  - Cerebrovascular accident [Recovered/Resolved]
  - Dysphonia [Recovered/Resolved]
  - Somnolence [Recovered/Resolved]
  - Osteopenia [Unknown]
  - Asthma [Recovered/Resolved]
  - Fall [Unknown]
  - Skin toxicity [Unknown]
  - Fatigue [Not Recovered/Not Resolved]
  - Depression [Not Recovered/Not Resolved]
  - Fatigue [Unknown]
  - COVID-19 pneumonia [Unknown]
  - Renal impairment [Unknown]
  - Nausea [Unknown]
  - Diarrhoea [Unknown]
  - Memory impairment [Unknown]

NARRATIVE: CASE EVENT DATE: 20201109
